FAERS Safety Report 17939377 (Version 1)
Quarter: 2020Q2

REPORT INFORMATION
  Report Type: Spontaneous
  Country: US (occurrence: US)
  Receive Date: 20200624
  Receipt Date: 20200624
  Transmission Date: 20200714
  Serious: Yes (Life-Threatening, Hospitalization, Other)
  Sender: FDA-Public Use
  Company Number: US-BRISTOL-MYERS SQUIBB COMPANY-BMS-2020-047180

PATIENT
  Age: 89 Year
  Sex: Female
  Weight: 54.88 kg

DRUGS (1)
  1. WARFARIN SODIUM. [Suspect]
     Active Substance: WARFARIN SODIUM
     Indication: PRODUCT USED FOR UNKNOWN INDICATION
     Dosage: 10 MILLIGRAM
     Route: 065

REACTIONS (12)
  - Pulmonary embolism [Unknown]
  - Pleural effusion [Unknown]
  - Splenic injury [Unknown]
  - Blood pressure abnormal [Unknown]
  - Eating disorder [Unknown]
  - Pneumonia [Unknown]
  - Intracardiac thrombus [Unknown]
  - Pain [Unknown]
  - Rib fracture [Unknown]
  - Movement disorder [Unknown]
  - Blood viscosity increased [Unknown]
  - Fall [Unknown]

NARRATIVE: CASE EVENT DATE: 20190824
